FAERS Safety Report 6710293-3 (Version None)
Quarter: 2010Q2

REPORT INFORMATION
  Report Type: 
  Country: None (occurrence: None)
  Receive Date: 20100430
  Receipt Date: 20100416
  Transmission Date: 20101027
  Serious: Yes (Other)
  Sender: FDA-Public Use
  Company Number: 010578

PATIENT
  Age: 40 Year
  Sex: Male

DRUGS (4)
  1. VIMPAT [Suspect]
     Indication: PARTIAL SEIZURES
     Dosage: INCREASE: 50 MG/WEEK
     Dates: start: 20090306, end: 20090401
  2. LEVETIRACETAM [Concomitant]
  3. LAMOTRIGINE [Concomitant]
  4. TIAGABINE HCL [Concomitant]

REACTIONS (2)
  - ANXIETY [None]
  - CONDITION AGGRAVATED [None]
